FAERS Safety Report 8506060-0 (Version None)
Quarter: 2012Q3

REPORT INFORMATION
  Report Type: 
  Country: None (occurrence: None)
  Receive Date: 20120712
  Receipt Date: 20120706
  Transmission Date: 20120928
  Serious: Yes (Disabling)
  Sender: FDA-Public Use
  Company Number: FR-009507513-1207FRA000798

PATIENT

DRUGS (7)
  1. HYDROCORTISONE [Suspect]
     Dosage: 30 MG, QD
     Route: 048
  2. SINGULAIR [Suspect]
     Indication: ASTHMA
     Dosage: 10 MG, QD
     Route: 048
     Dates: start: 20091001
  3. VITAMIN D [Suspect]
     Dosage: 100000 IU, MTH
     Route: 048
     Dates: start: 20101126
  4. SYMBICORT [Suspect]
     Indication: ASTHMA
     Dosage: 400/12 A?G
     Route: 048
     Dates: start: 20010101
  5. XOLAIR [Suspect]
     Indication: ASTHMA
     Dosage: 225 MG, Q2W
     Route: 058
     Dates: start: 20010101
  6. CALCIUM (UNSPECIFIED) [Suspect]
     Dosage: 500 MG, BID
     Route: 048
     Dates: start: 20100501
  7. SOLU-MEDROL [Suspect]
     Dosage: 250 MG DAILY DECREASED TO 0 MG
     Route: 048
     Dates: start: 20110601

REACTIONS (1)
  - TENDONITIS [None]
